FAERS Safety Report 5569478-4 (Version None)
Quarter: 2007Q4

REPORT INFORMATION
  Report Type: 
  Country: None (occurrence: None)
  Receive Date: 20071218
  Receipt Date: 20071212
  Transmission Date: 20080405
  Serious: Yes (Other)
  Sender: FDA-Public Use
  Company Number: CHPA2007CA13568

PATIENT
  Sex: Female

DRUGS (1)
  1. BUCKLEY'S WHITE RUB (NCH)(MENTHOL, CAMPHOR, METHYL SALICYLATE, THYMOL) [Suspect]
     Indication: UPPER RESPIRATORY TRACT CONGESTION
     Dosage: DAILY AT NIGHT, TOPICAL
     Route: 061
     Dates: end: 20071211

REACTIONS (1)
  - CHEMICAL BURN OF SKIN [None]
